FAERS Safety Report 8281716-6 (Version None)
Quarter: 2012Q2

REPORT INFORMATION
  Report Type: 
  Country: None (occurrence: None)
  Receive Date: 20120413
  Receipt Date: 20120409
  Transmission Date: 20120825
  Serious: No
  Sender: FDA-Public Use
  Company Number: US-PFIZER INC-2012065510

PATIENT
  Age: 81 Year
  Sex: Female

DRUGS (1)
  1. NEURONTIN [Suspect]
     Indication: CONVULSION
     Dosage: 300 MG, 3X/DAY
     Route: 048

REACTIONS (5)
  - AGITATION [None]
  - NERVOUSNESS [None]
  - MALAISE [None]
  - CHEST PAIN [None]
  - OEDEMA PERIPHERAL [None]
